FAERS Safety Report 8022808-6 (Version None)
Quarter: 2012Q1

REPORT INFORMATION
  Report Type: 
  Country: None (occurrence: None)
  Receive Date: 20120104
  Receipt Date: 20111227
  Transmission Date: 20120608
  Serious: Yes (Hospitalization, Disabling, Other)
  Sender: FDA-Public Use
  Company Number: US-MERCK-1109USA02130

PATIENT
  Age: 50 Year
  Sex: Female
  Weight: 84 kg

DRUGS (15)
  1. FOSAMAX [Suspect]
     Route: 048
     Dates: start: 20020213
  2. FOSAMAX [Suspect]
     Route: 048
     Dates: start: 20020213
  3. FOSAMAX [Suspect]
     Indication: OSTEOPOROSIS
     Route: 048
     Dates: start: 19980101, end: 20100101
  4. ALENDRONATE SODIUM [Suspect]
     Indication: OSTEOPENIA
     Route: 048
  5. FOSAMAX [Suspect]
     Route: 048
     Dates: start: 20020116
  6. MULTI VITE [Concomitant]
     Route: 048
  7. FOSAMAX [Suspect]
     Route: 048
     Dates: start: 20020116
  8. VITA C [Concomitant]
     Route: 065
  9. ALENDRONATE SODIUM [Suspect]
     Route: 048
     Dates: start: 20090901, end: 20091125
  10. FOSAMAX [Suspect]
     Indication: OSTEOPENIA
     Route: 048
     Dates: start: 19980101, end: 20100101
  11. ALENDRONATE SODIUM [Suspect]
     Indication: OSTEOPOROSIS
     Route: 048
  12. BENICAR [Concomitant]
     Route: 065
     Dates: start: 19980101
  13. CALCIUM (UNSPECIFIED) [Concomitant]
     Route: 048
  14. ESTRACE [Concomitant]
     Indication: MENOPAUSE
     Route: 065
     Dates: start: 19960101
  15. ALENDRONATE SODIUM [Suspect]
     Route: 048
     Dates: start: 20090901, end: 20091125

REACTIONS (23)
  - DEPRESSION [None]
  - IMPAIRED HEALING [None]
  - DECREASED APPETITE [None]
  - INAPPROPRIATE SCHEDULE OF DRUG ADMINISTRATION [None]
  - ECZEMA [None]
  - VITAMIN D DEFICIENCY [None]
  - HORMONE LEVEL ABNORMAL [None]
  - FEMUR FRACTURE [None]
  - RENAL ARTERY STENOSIS [None]
  - LOW TURNOVER OSTEOPATHY [None]
  - PANCREATITIS [None]
  - INSOMNIA [None]
  - CARDIAC DISORDER [None]
  - FALL [None]
  - ANXIETY [None]
  - RHINITIS ALLERGIC [None]
  - FATIGUE [None]
  - ASTHMA [None]
  - HYPERLIPIDAEMIA [None]
  - BLOOD PRESSURE INCREASED [None]
  - HYPERSENSITIVITY [None]
  - TYPE 2 DIABETES MELLITUS [None]
  - BLOOD CHOLESTEROL INCREASED [None]
